FAERS Safety Report 16758575 (Version 1)
Quarter: 2019Q3

REPORT INFORMATION
  Report Type: Spontaneous
  Country: US (occurrence: US)
  Receive Date: 20190830
  Receipt Date: 20190830
  Transmission Date: 20191005
  Serious: No
  Sender: FDA-Public Use
  Company Number: US-TEVA-2019-US-1100975

PATIENT
  Age: 30 Year
  Sex: Male

DRUGS (2)
  1. ENOXAPARIN SODIUM INJECTION USP [Suspect]
     Active Substance: ENOXAPARIN SODIUM
     Indication: PULMONARY EMBOLISM
  2. ENOXAPARIN SODIUM INJECTION USP [Suspect]
     Active Substance: ENOXAPARIN SODIUM
     Indication: THROMBOSIS
     Dosage: 150 MG/1 ML
     Route: 065

REACTIONS (3)
  - Contusion [Unknown]
  - Abdominal discomfort [Unknown]
  - Abdominal pain upper [Unknown]
